FAERS Safety Report 20721229 (Version 3)
Quarter: 2023Q1

REPORT INFORMATION
  Report Type: Spontaneous
  Country: US (occurrence: US)
  Receive Date: 20220418
  Receipt Date: 20230110
  Transmission Date: 20230417
  Serious: No
  Sender: FDA-Public Use
  Company Number: US-LUPIN PHARMACEUTICALS INC.-2022-05359

PATIENT

DRUGS (2)
  1. TESTOSTERONE GEL 1.62% [Suspect]
     Active Substance: TESTOSTERONE
     Indication: Product used for unknown indication
     Dosage: UNK
     Route: 061
     Dates: start: 2022
  2. TESTOSTERONE GEL 1.62% [Suspect]
     Active Substance: TESTOSTERONE
     Dosage: UNK
     Route: 061

REACTIONS (3)
  - Incorrect dose administered by device [Unknown]
  - Device delivery system issue [Unknown]
  - No adverse event [Unknown]
